FAERS Safety Report 17293946 (Version 1)
Quarter: 2020Q1

REPORT INFORMATION
  Report Type: Spontaneous
  Country: US (occurrence: US)
  Receive Date: 20200121
  Receipt Date: 20200121
  Transmission Date: 20200409
  Serious: No
  Sender: FDA-Public Use
  Company Number: US-SA-2020SA011590

PATIENT
  Age: 63 Year
  Sex: Male

DRUGS (1)
  1. APIDRA SOLOSTAR [Suspect]
     Active Substance: INSULIN GLULISINE
     Indication: TYPE 1 DIABETES MELLITUS
     Dosage: 5 UNITS OF APIDRA THREE TIMES PER DAY, ALSO INJECTS 2 UNITS WITH SNACKS
     Route: 065

REACTIONS (1)
  - Visual impairment [Unknown]
